FAERS Safety Report 16352401 (Version 1)
Quarter: 2019Q2

REPORT INFORMATION
  Report Type: Report from Study
  Country: None (occurrence: CO)
  Receive Date: 20190524
  Receipt Date: 20190524
  Transmission Date: 20190711
  Serious: Yes (Other)
  Sender: FDA-Public Use
  Company Number: CO-ABBVIE-17K-036-2034882-00

PATIENT
  Age: 35 Year
  Sex: Male
  Weight: 90 kg

DRUGS (1)
  1. HUMIRA [Suspect]
     Active Substance: ADALIMUMAB
     Indication: PSORIASIS
     Route: 058
     Dates: start: 20160510, end: 20170623

REACTIONS (10)
  - Stress [Unknown]
  - Depression [Recovering/Resolving]
  - Hepatic steatosis [Recovering/Resolving]
  - Colitis ulcerative [Unknown]
  - Anxiety [Recovering/Resolving]
  - Klebsiella infection [Not Recovered/Not Resolved]
  - Migraine [Recovering/Resolving]
  - Prostatitis [Not Recovered/Not Resolved]
  - Urinary tract infection [Not Recovered/Not Resolved]
  - Transaminases increased [Unknown]

NARRATIVE: CASE EVENT DATE: 2017
